FAERS Safety Report 6506099-0 (Version None)
Quarter: 2009Q4

REPORT INFORMATION
  Report Type: 
  Country: None (occurrence: None)
  Receive Date: 20091218
  Receipt Date: 20091211
  Transmission Date: 20100525
  Serious: No
  Sender: FDA-Public Use
  Company Number: US-B.I. PHARMACEUTICALS,INC./RIDGEFIELD-2009-BP-14479BP

PATIENT
  Sex: Male

DRUGS (13)
  1. SPIRIVA [Suspect]
     Indication: CHRONIC OBSTRUCTIVE PULMONARY DISEASE
     Dosage: 18 MCG
     Route: 055
     Dates: start: 20091001, end: 20091001
  2. SPIRIVA [Suspect]
     Indication: EMPHYSEMA
  3. ADVAIR DISKUS 100/50 [Concomitant]
     Indication: CHRONIC OBSTRUCTIVE PULMONARY DISEASE
  4. ADVAIR DISKUS 100/50 [Concomitant]
     Indication: EMPHYSEMA
  5. DUONEB [Concomitant]
     Indication: CHRONIC OBSTRUCTIVE PULMONARY DISEASE
  6. DUONEB [Concomitant]
     Indication: EMPHYSEMA
  7. OXYGEN [Concomitant]
     Indication: CHRONIC OBSTRUCTIVE PULMONARY DISEASE
  8. OXYGEN [Concomitant]
     Indication: EMPHYSEMA
  9. CPAP MACHINE [Concomitant]
     Indication: SLEEP APNOEA SYNDROME
  10. PERCOCET [Concomitant]
     Indication: BACK PAIN
  11. PERCOCET [Concomitant]
     Indication: PAIN IN EXTREMITY
  12. FENTANYL [Concomitant]
     Indication: BACK PAIN
  13. FENTANYL [Concomitant]
     Indication: PAIN IN EXTREMITY

REACTIONS (1)
  - SWELLING [None]
